FAERS Safety Report 5887020-5 (Version None)
Quarter: 2008Q3

REPORT INFORMATION
  Report Type: 
  Country: None (occurrence: None)
  Receive Date: 20080915
  Receipt Date: 20080829
  Transmission Date: 20090109
  Serious: Yes (Hospitalization)
  Sender: FDA-Public Use
  Company Number: 8035154

PATIENT
  Age: 5 Year
  Sex: Male

DRUGS (4)
  1. THEOPHYLLINE [Suspect]
     Indication: COUGH
     Dosage: 240 MG TWICE PO
     Route: 048
  2. THEOPHYLLINE [Suspect]
     Indication: RHINORRHOEA
     Dosage: 240 MG TWICE PO
     Route: 048
  3. PRANLUKAST HYDRATE [Concomitant]
  4. TULOBUTEROL HYDROCHLORIDE [Concomitant]

REACTIONS (15)
  - ABDOMINAL PAIN [None]
  - CSF LACTATE INCREASED [None]
  - CYANOSIS [None]
  - FEELING ABNORMAL [None]
  - GRAND MAL CONVULSION [None]
  - HEART RATE INCREASED [None]
  - HYPERTONIA [None]
  - HYPOVENTILATION [None]
  - MYOCLONUS [None]
  - PUPILLARY REFLEX IMPAIRED [None]
  - RESPIRATORY ACIDOSIS [None]
  - STATUS EPILEPTICUS [None]
  - STRIDOR [None]
  - TACHYCARDIA [None]
  - VOMITING [None]
